FAERS Safety Report 6805608-1 (Version None)
Quarter: 2010Q2

REPORT INFORMATION
  Report Type: 
  Country: None (occurrence: None)
  Receive Date: 20100628
  Receipt Date: 20080219
  Transmission Date: 20101027
  Serious: No
  Sender: FDA-Public Use
  Company Number: US-PFIZER INC-2008015577

PATIENT
  Sex: Male
  Weight: 84.1 kg

DRUGS (12)
  1. GENOTROPIN [Suspect]
     Indication: HYPOPITUITARISM
     Route: 058
     Dates: start: 20080123
  2. HYDROCORT [Concomitant]
  3. DRUG, UNSPECIFIED [Concomitant]
  4. CORTEF [Concomitant]
  5. OXYCODONE HCL [Concomitant]
  6. NADOLOL [Concomitant]
  7. AMLODIPINE [Concomitant]
  8. AMITRIPTYLINE [Concomitant]
  9. ACIPHEX [Concomitant]
  10. VITAMIN B-12 [Concomitant]
  11. TESTOSTERONE [Concomitant]
  12. TAMSULOSIN HYDROCHLORIDE [Concomitant]

REACTIONS (5)
  - ABNORMAL DREAMS [None]
  - HEADACHE [None]
  - HYPERTENSION [None]
  - OEDEMA PERIPHERAL [None]
  - POOR QUALITY SLEEP [None]
